FAERS Safety Report 8394743-5 (Version None)
Quarter: 2012Q2

REPORT INFORMATION
  Report Type: 
  Country: None (occurrence: None)
  Receive Date: 20120529
  Receipt Date: 20120529
  Transmission Date: 20120825
  Serious: Yes (Hospitalization)
  Sender: FDA-Public Use
  Company Number: None

PATIENT
  Age: 54 Year
  Sex: Female
  Weight: 90 kg

DRUGS (2)
  1. CARBOPLATIN [Suspect]
     Indication: BREAST CANCER
     Dosage: WEEKS 1, 4, 7, 10, 13 + 16
     Route: 042
  2. ABRAXANE 199 MG IV [Suspect]
     Indication: BREAST CANCER
     Dosage: WKLY X 8 WEEKS

REACTIONS (5)
  - PYREXIA [None]
  - CHILLS [None]
  - INFECTION [None]
  - MALAISE [None]
  - OROPHARYNGEAL PAIN [None]
